FAERS Safety Report 4706793-8 (Version None)
Quarter: 2005Q3

REPORT INFORMATION
  Report Type: 
  Country: None (occurrence: None)
  Receive Date: 20050705
  Receipt Date: 20050620
  Transmission Date: 20060218
  Serious: Yes (Hospitalization)
  Sender: FDA-Public Use
  Company Number: 2005BH000354

PATIENT
  Age: 54 Year
  Sex: Male
  Weight: 95 kg

DRUGS (1)
  1. HEPARIN SODIUM [Suspect]
     Dosage: 5700 IU;IV
     Route: 042
     Dates: start: 20050618, end: 20050618

REACTIONS (1)
  - THROMBOSIS IN DEVICE [None]
